FAERS Safety Report 5662627-9 (Version None)
Quarter: 2008Q1

REPORT INFORMATION
  Report Type: 
  Country: None (occurrence: None)
  Receive Date: 20080310
  Receipt Date: 20080310
  Transmission Date: 20080703
  Serious: Yes (Life-Threatening)
  Sender: FDA-Public Use
  Company Number: None

PATIENT
  Age: 48 Year
  Sex: Female
  Weight: 52 kg

DRUGS (3)
  1. GADOLINIUM   BAYER [Suspect]
     Indication: PREOPERATIVE CARE
     Dosage: IV
     Route: 042
     Dates: start: 20050420, end: 20050420
  2. GADOLINIUM   GE [Suspect]
     Indication: AMPUTATION REVISION
     Dosage: IV
     Route: 042
     Dates: start: 20050920, end: 20050920
  3. TACO CREAM [Concomitant]

REACTIONS (1)
  - NEPHROGENIC SYSTEMIC FIBROSIS [None]
